FAERS Safety Report 7079351-0 (Version None)
Quarter: 2010Q4

REPORT INFORMATION
  Report Type: 
  Country: None (occurrence: None)
  Receive Date: 20101102
  Receipt Date: 20101026
  Transmission Date: 20110411
  Serious: Yes (Hospitalization, Other)
  Sender: FDA-Public Use
  Company Number: FR-BAYER-201039911GPV

PATIENT
  Age: 51 Year
  Sex: Male

DRUGS (2)
  1. ULTRAVIST 370 [Suspect]
     Indication: COMPUTERISED TOMOGRAM THORAX
     Dosage: TOTAL DAILY DOSE: 110 ML
     Route: 042
     Dates: start: 20100914, end: 20100914
  2. BISEPTINE [Concomitant]
     Indication: INFECTION PROPHYLAXIS
     Route: 003

REACTIONS (3)
  - ANGIOEDEMA [None]
  - DYSPHONIA [None]
  - GENERALISED ERYTHEMA [None]
